FAERS Safety Report 7885147-X (Version None)
Quarter: 2011Q4

REPORT INFORMATION
  Report Type: 
  Country: None (occurrence: None)
  Receive Date: 20111102
  Receipt Date: 20111029
  Transmission Date: 20120403
  Serious: Yes (Disabling, Other)
  Sender: FDA-Public Use
  Company Number: RU-ELI_LILLY_AND_COMPANY-RU201110001602

PATIENT
  Age: 54 Year
  Sex: Female

DRUGS (7)
  1. BYETTA [Suspect]
     Indication: DIABETES MELLITUS
     Dosage: 10 UG, UNKNOWN
     Dates: start: 20110816, end: 20110928
  2. AMARYL [Concomitant]
     Dosage: 4 MG, QD
  3. BYETTA [Suspect]
     Dosage: 10 UG, UNKNOWN
     Dates: start: 20110916, end: 20110928
  4. CURANTIL [Concomitant]
     Dosage: UNK UNK, TID
  5. NOLIPREL [Concomitant]
     Dosage: UNK UNK, QD
  6. GLUCOFAGE [Concomitant]
     Dosage: 850 MG, BID
  7. PENTOXIFILLINE [Concomitant]
     Dosage: 1 DF, QD

REACTIONS (5)
  - RENAL DISORDER [None]
  - LIVER DISORDER [None]
  - PANCREATITIS CHRONIC [None]
  - GASTROINTESTINAL DISORDER [None]
  - HEADACHE [None]
